FAERS Safety Report 6987279-7 (Version None)
Quarter: 2010Q3

REPORT INFORMATION
  Report Type: 
  Country: None (occurrence: None)
  Receive Date: 20100916
  Receipt Date: 20100903
  Transmission Date: 20110219
  Serious: Yes (Hospitalization)
  Sender: FDA-Public Use
  Company Number: DE-PAR PHARMACEUTICAL, INC-2010SCPR000446

PATIENT
  Sex: Male

DRUGS (11)
  1. IBUPROFEN [Suspect]
     Dosage: UNK
     Route: 065
     Dates: start: 20091211
  2. XARELTO [Suspect]
     Indication: THROMBOSIS PROPHYLAXIS
     Dosage: UNK
     Route: 065
     Dates: start: 20091210
  3. XARELTO [Suspect]
     Indication: KNEE ARTHROPLASTY
  4. NOVALGIN                           /06276703/ [Concomitant]
     Indication: PAIN
     Dosage: 4000 MG, UNKNOWN
     Route: 065
     Dates: start: 20091211
  5. PALLADON                           /00080902/ [Concomitant]
     Indication: PAIN
     Dosage: 1.3 MG, UNKNOWN
     Route: 065
     Dates: start: 20091211, end: 20091211
  6. PALLADON                           /00080902/ [Concomitant]
     Dosage: 1.3 MG, UNKNOWN
     Route: 065
     Dates: start: 20091213, end: 20091214
  7. PERFALGAN [Concomitant]
     Indication: PAIN
     Dosage: 1 G, UNKNOWN
     Route: 042
     Dates: start: 20091211, end: 20091212
  8. DIPIDOLOR [Concomitant]
     Indication: PAIN
     Dosage: UNK
     Route: 058
     Dates: start: 20091217, end: 20091221
  9. RAMIPRIL PLUS [Concomitant]
     Indication: HYPERTENSION
     Dosage: 15 MG, UNK
     Dates: start: 20080101
  10. TARGIN [Concomitant]
     Indication: PRODUCT USED FOR UNKNOWN INDICATION
     Dosage: 15 MG, UNKNOWN
     Route: 065
     Dates: start: 20091211, end: 20091212
  11. TARGIN [Concomitant]
     Dosage: 30 MG, UNK
     Dates: start: 20091212

REACTIONS (5)
  - C-REACTIVE PROTEIN ABNORMAL [None]
  - DRUG INTERACTION [None]
  - HAEMATOMA INFECTION [None]
  - HAEMOGLOBIN ABNORMAL [None]
  - POST PROCEDURAL HAEMATOMA [None]
